FAERS Safety Report 16715846 (Version 9)
Quarter: 2021Q2

REPORT INFORMATION
  Report Type: Spontaneous
  Country: US (occurrence: US)
  Receive Date: 20190819
  Receipt Date: 20210517
  Transmission Date: 20210716
  Serious: Yes (Hospitalization, Other)
  Sender: FDA-Public Use
  Company Number: US-PFIZER INC-2019353290

PATIENT
  Age: 65 Year
  Sex: Female
  Weight: 114.31 kg

DRUGS (4)
  1. LYRICA [Suspect]
     Active Substance: PREGABALIN
     Indication: PAIN
     Dosage: 200 MG, 3X/DAY
     Route: 048
  2. XANAX [Concomitant]
     Active Substance: ALPRAZOLAM
     Indication: GENERALISED ANXIETY DISORDER
     Dosage: 0.5 MG, 1X/DAY (AT BEDTIME)
     Route: 048
     Dates: start: 20190801
  3. ROBAXIN?750 [Concomitant]
     Active Substance: METHOCARBAMOL
     Indication: ARTHRALGIA
     Dosage: 750 MG, AS NEEDED
     Route: 048
     Dates: start: 20190722
  4. LYRICA [Suspect]
     Active Substance: PREGABALIN
     Indication: NEUROPATHY PERIPHERAL
     Dosage: 200 MG, 3X/DAY (200MG 3 TIMES A DAY BY MOUTH, MORNING NOON AND NIGHT.)
     Route: 048

REACTIONS (15)
  - Pyrexia [Unknown]
  - Feeling of body temperature change [Unknown]
  - Nausea [Unknown]
  - Withdrawal syndrome [Unknown]
  - Feeling abnormal [Unknown]
  - Haemorrhage [Unknown]
  - Irritability [Unknown]
  - Infection [Unknown]
  - Blister [Unknown]
  - Delirium [Unknown]
  - Callus formation delayed [Unknown]
  - Staphylococcal infection [Unknown]
  - Hyperkeratosis [Unknown]
  - Somnolence [Unknown]
  - Memory impairment [Unknown]
